FAERS Safety Report 6119371-3 (Version None)
Quarter: 2009Q1

REPORT INFORMATION
  Report Type: 
  Country: None (occurrence: None)
  Receive Date: 20090316
  Receipt Date: 20090303
  Transmission Date: 20090719
  Serious: Yes (Other)
  Sender: FDA-Public Use
  Company Number: PHHY2009PE08091

PATIENT
  Age: 25 Year
  Sex: Female

DRUGS (2)
  1. VOLTAREN [Suspect]
     Indication: PAIN
  2. NIFEDIPINE [Concomitant]

REACTIONS (6)
  - ABORTION SPONTANEOUS [None]
  - DRUG EXPOSURE DURING PREGNANCY [None]
  - FEELING COLD [None]
  - HAEMORRHAGE [None]
  - PAIN [None]
  - VOMITING [None]
